FAERS Safety Report 7049005-5 (Version None)
Quarter: 2010Q4

REPORT INFORMATION
  Report Type: 
  Country: None (occurrence: None)
  Receive Date: 20101007
  Receipt Date: 20100921
  Transmission Date: 20110411
  Serious: Yes (Hospitalization)
  Sender: FDA-Public Use
  Company Number: 018632

PATIENT
  Age: 29 Year
  Sex: Female
  Weight: 109.8 kg

DRUGS (1)
  1. KEPPRA [Suspect]
     Indication: CONVULSION
     Dosage: (1000 MG BID, 3-4 YEARS AGO ORAL), (500 MG, ONE 500 MG KEPPRA PILL)
     Route: 048
     Dates: start: 20100908, end: 20100908

REACTIONS (5)
  - ASTHENIA [None]
  - COMA [None]
  - CONVULSION [None]
  - HEADACHE [None]
  - JOINT INJURY [None]
